FAERS Safety Report 16018685 (Version 12)
Quarter: 2022Q3

REPORT INFORMATION
  Report Type: Spontaneous
  Country: US (occurrence: US)
  Receive Date: 20190228
  Receipt Date: 20220718
  Transmission Date: 20221026
  Serious: Yes (Death, Other)
  Sender: FDA-Public Use
  Company Number: US-GLAXOSMITHKLINE-US2019GSK036501

PATIENT
  Sex: Male

DRUGS (5)
  1. PREVACID [Suspect]
     Active Substance: LANSOPRAZOLE
     Indication: Gastrooesophageal reflux disease
     Dosage: 40 MG
     Route: 065
  2. LANSOPRAZOLE [Suspect]
     Active Substance: LANSOPRAZOLE
     Indication: Gastrooesophageal reflux disease
     Dosage: UNK
     Route: 065
  3. OMEPRAZOLE [Suspect]
     Active Substance: OMEPRAZOLE
     Indication: Gastrooesophageal reflux disease
     Dosage: UNK
     Route: 065
  4. PANTOPRAZOLE [Suspect]
     Active Substance: PANTOPRAZOLE
     Indication: Gastric disorder
     Dosage: 40 MG, QD
     Route: 048
  5. PANTOPRAZOLE [Suspect]
     Active Substance: PANTOPRAZOLE
     Dosage: 40 MG, BID
     Route: 048

REACTIONS (34)
  - Death [Fatal]
  - Renal failure [Unknown]
  - Chronic kidney disease [Unknown]
  - Kidney infection [Unknown]
  - Nephrolithiasis [Unknown]
  - Hydronephrosis [Unknown]
  - End stage renal disease [Unknown]
  - Diabetic nephropathy [Unknown]
  - Acute kidney injury [Unknown]
  - Prerenal failure [Unknown]
  - Renal impairment [Unknown]
  - Pulmonary renal syndrome [Unknown]
  - Hypertensive nephropathy [Unknown]
  - Chronic kidney disease-mineral and bone disorder [Unknown]
  - Nephritis [Unknown]
  - Azotaemia [Unknown]
  - Hydroureter [Unknown]
  - Type 2 diabetes mellitus [Unknown]
  - Left ventricular failure [Unknown]
  - Nephropathy [Unknown]
  - Proteinuria [Unknown]
  - Renal disorder [Unknown]
  - Nephrogenic anaemia [Unknown]
  - Renal colic [Unknown]
  - Renal cyst [Unknown]
  - Oliguria [Unknown]
  - Micturition urgency [Unknown]
  - Haematuria [Unknown]
  - Ureteric dilatation [Unknown]
  - Dysuria [Unknown]
  - Device dependence [Unknown]
  - Essential hypertension [Unknown]
  - Hypertension [Unknown]
  - Chronic obstructive pulmonary disease [Unknown]
